FAERS Safety Report 9044430 (Version 1)
Quarter: 2013Q1

REPORT INFORMATION
  Report Type: Spontaneous
  Country: US (occurrence: US)
  Receive Date: 20130131
  Receipt Date: 20130131
  Transmission Date: 20140127
  Serious: No
  Sender: FDA-Public Use
  Company Number: US-BIOGENIDEC-2013BI007848

PATIENT
  Sex: Female

DRUGS (2)
  1. AVONEX [Suspect]
     Indication: MULTIPLE SCLEROSIS
     Route: 030
     Dates: start: 19960609, end: 20050601
  2. AVONEX [Suspect]
     Indication: MULTIPLE SCLEROSIS
     Route: 030
     Dates: start: 20090717

REACTIONS (16)
  - Spinal disorder [Not Recovered/Not Resolved]
  - Stress [Recovered/Resolved]
  - Sleep apnoea syndrome [Not Recovered/Not Resolved]
  - Adverse event [Recovered/Resolved]
  - Intervertebral disc protrusion [Recovered/Resolved with Sequelae]
  - Surgery [Recovered/Resolved]
  - Body height decreased [Recovered/Resolved]
  - Hypertension [Recovered/Resolved with Sequelae]
  - Neuropathy peripheral [Recovered/Resolved with Sequelae]
  - Type 2 diabetes mellitus [Recovered/Resolved with Sequelae]
  - Visual impairment [Recovered/Resolved with Sequelae]
  - Anger [Recovered/Resolved]
  - Aphasia [Recovered/Resolved]
  - Pain [Recovered/Resolved with Sequelae]
  - Fatigue [Recovered/Resolved]
  - Depression [Recovered/Resolved]
